FAERS Safety Report 5665176-7 (Version None)
Quarter: 2008Q1

REPORT INFORMATION
  Report Type: 
  Country: None (occurrence: None)
  Receive Date: 20080314
  Receipt Date: 20060818
  Transmission Date: 20080703
  Serious: Yes (Hospitalization)
  Sender: FDA-Public Use
  Company Number: US-ABBOTT-06P-163-0344038-00

PATIENT
  Age: 30 Year
  Sex: Male

DRUGS (2)
  1. HUMIRA [Suspect]
     Indication: COLITIS ULCERATIVE
     Route: 048
     Dates: start: 20060501, end: 20060501
  2. HUMIRA [Suspect]
     Route: 048
     Dates: start: 20060501, end: 20060601

REACTIONS (3)
  - ARTHRALGIA [None]
  - HERPES VIRUS INFECTION [None]
  - PYREXIA [None]
